FAERS Safety Report 6715052-3 (Version None)
Quarter: 2010Q2

REPORT INFORMATION
  Report Type: 
  Country: None (occurrence: None)
  Receive Date: 20100507
  Receipt Date: 20100430
  Transmission Date: 20101027
  Serious: Yes (Death, Other)
  Sender: FDA-Public Use
  Company Number: ES-PFIZER INC-2010014945

PATIENT
  Age: 33 Year
  Sex: Female
  Weight: 84.2 kg

DRUGS (2)
  1. ZELDOX [Suspect]
     Indication: SCHIZOAFFECTIVE DISORDER
     Dosage: 120 MG, UNK
     Dates: start: 20080101
  2. ZELDOX [Suspect]
     Indication: DELUSION

REACTIONS (2)
  - CAESAREAN SECTION [None]
  - DEATH [None]
